FAERS Safety Report 11287446 (Version 1)
Quarter: 2015Q3

REPORT INFORMATION
  Report Type: Spontaneous
  Country: GB (occurrence: GB)
  Receive Date: 20150721
  Receipt Date: 20150721
  Transmission Date: 20151125
  Serious: Yes (Hospitalization)
  Sender: FDA-Public Use
  Company Number: GB-TEVA-577916ACC

PATIENT
  Age: 80 Year
  Sex: Male

DRUGS (4)
  1. GABAPENTIN. [Suspect]
     Active Substance: GABAPENTIN
     Indication: DIABETIC NEUROPATHY
     Dosage: 2 IN THE MORNING/1 AT 12PM/1 AT 6PM/2 AT NIGHT
     Route: 048
  2. GLICLAZIDE [Concomitant]
     Active Substance: GLICLAZIDE
     Dosage: 80 MILLIGRAM DAILY; EVERY MORNING
  3. SIMVASTATIN. [Concomitant]
     Active Substance: SIMVASTATIN
     Dosage: 20 MILLIGRAM DAILY; EVERY NIGHT
  4. RABEPRAZOLE [Concomitant]
     Active Substance: RABEPRAZOLE
     Dosage: 20 MILLIGRAM DAILY; GASTRO-RESISTANT TABLET, EVERY MORNING

REACTIONS (4)
  - Somnolence [Recovered/Resolved]
  - Sepsis [Recovered/Resolved]
  - Sleep attacks [Recovered/Resolved]
  - Acute kidney injury [Recovered/Resolved]
